FAERS Safety Report 8886447 (Version 1)
Quarter: 2012Q4

REPORT INFORMATION
  Report Type: 
  Country: US (occurrence: US)
  Receive Date: 20121105
  Receipt Date: 20121105
  Transmission Date: 20130627
  Serious: Yes (Other)
  Sender: FDA-Public Use
  Company Number: PHEH2012US018618

PATIENT
  Age: 39 Year
  Sex: Female
  Weight: 88.44 kg

DRUGS (1)
  1. GILENYA [Suspect]
     Indication: MULTIPLE SCLEROSIS
     Dosage: 0.5 mg, QD
     Route: 048
     Dates: start: 20110707, end: 20120816

REACTIONS (7)
  - Bronchitis [Recovering/Resolving]
  - Bronchospasm [None]
  - Otitis media [Not Recovered/Not Resolved]
  - Cellulitis [Recovering/Resolving]
  - Labyrinthitis [Not Recovered/Not Resolved]
  - Pharyngitis [Not Recovered/Not Resolved]
  - Sinusitis [Recovering/Resolving]
